FAERS Safety Report 9719160 (Version 3)
Quarter: 2014Q2

REPORT INFORMATION
  Report Type: Report from Study
  Country: US (occurrence: US)
  Receive Date: 20131127
  Receipt Date: 20140527
  Transmission Date: 20141212
  Serious: No
  Sender: FDA-Public Use
  Company Number: PHEH2013US024302

PATIENT
  Age: 69 Year
  Sex: Male
  Weight: 86.17 kg

DRUGS (6)
  1. TASIGNA [Suspect]
     Indication: CHRONIC MYELOID LEUKAEMIA
     Dosage: 300 MG, BID
     Route: 048
  2. SIMVASTATIN [Concomitant]
  3. ASPIRIN [Concomitant]
  4. TOPROL XL [Concomitant]
  5. LOSARTAN [Concomitant]
  6. COUMADINE [Concomitant]

REACTIONS (2)
  - Weight decreased [Unknown]
  - Fatigue [Unknown]
